FAERS Safety Report 4369065-X (Version None)
Quarter: 2004Q2

REPORT INFORMATION
  Report Type: 
  Country: None (occurrence: None)
  Receive Date: 20040527
  Receipt Date: 20040514
  Transmission Date: 20050107
  Serious: No
  Sender: FDA-Public Use
  Company Number: USA030536803

PATIENT
  Age: 81 Year
  Sex: Female
  Weight: 56 kg

DRUGS (6)
  1. FORTEO [Suspect]
     Indication: OSTEOPOROSIS
     Dosage: 20 UG/DAY
     Dates: start: 20030505
  2. MIACALCIN (CALCITONIN) [Concomitant]
  3. ESTROGEN NOS [Concomitant]
  4. PROGESTIN INJ [Concomitant]
  5. NEXIUM [Concomitant]
  6. VALIUM [Concomitant]

REACTIONS (7)
  - CHOLECYSTECTOMY [None]
  - DRUG INEFFECTIVE [None]
  - HEADACHE [None]
  - INJECTION SITE ERYTHEMA [None]
  - MUSCLE CRAMP [None]
  - MYALGIA [None]
  - PAIN IN EXTREMITY [None]
